FAERS Safety Report 24424319 (Version 1)
Quarter: 2024Q4

REPORT INFORMATION
  Report Type: Spontaneous
  Country: US (occurrence: US)
  Receive Date: 20241010
  Receipt Date: 20241010
  Transmission Date: 20250114
  Serious: Yes (Other)
  Sender: FRESENIUS KABI
  Company Number: US-FreseniusKabi-FK202414780

PATIENT
  Age: 76 Year
  Sex: Female
  Weight: 92.2 kg

DRUGS (11)
  1. MESNA [Suspect]
     Active Substance: MESNA
     Indication: Product used for unknown indication
     Dosage: CYCLIC (CYCLE 1, 3, DAYS 1-3)
     Dates: start: 20230612
  2. INOTUZUMAB OZOGAMICIN [Suspect]
     Active Substance: INOTUZUMAB OZOGAMICIN
     Indication: Acute lymphocytic leukaemia
     Dosage: CYCLIC (CYCLE 1: 0.6 MG/M2 D2, 0.3 MG/M2 D8  CYCLES 2-4: 0.3 MG/M2 D2, 0.3 MG/M2 D8)
     Route: 042
     Dates: start: 20230612
  3. METHOTREXATE SODIUM [Suspect]
     Active Substance: METHOTREXATE SODIUM
     Indication: Acute lymphocytic leukaemia
     Dosage: CYCLIC (250 MG/M2, CYCLIC (CYCLE2, 4, DAY 1)
     Route: 042
     Dates: start: 20230612
  4. METHOTREXATE SODIUM [Suspect]
     Active Substance: METHOTREXATE SODIUM
     Dosage: CYCLIC (CYCLE 1-2, DAY 2, DAY 8)
     Route: 037
     Dates: start: 20230612
  5. METHYLPREDNISOLONE SODIUM SUCCINATE [Suspect]
     Active Substance: METHYLPREDNISOLONE SODIUM SUCCINATE
     Indication: Acute lymphocytic leukaemia
     Dosage: CYCLIC (CYCLE 2, 4, EVERY 12 HS X 6 DOSES, DAYS 1-3)?FORM OF ADMINISTRATION: POWDER FOR SOLUTION FOR
     Route: 042
     Dates: start: 20230612
  6. CYTARABINE [Suspect]
     Active Substance: CYTARABINE
     Indication: Acute lymphocytic leukaemia
     Dosage: CYCLIC (CYCLE 2,4, 0.5 G/M2/DOSE EVERY 12 HRS X 4 DOSES, DAYS 2, 3)
     Route: 042
     Dates: start: 20230612
  7. CYTARABINE [Suspect]
     Active Substance: CYTARABINE
     Dosage: CYCLIC (CYCLE 1-2,DAY 2, DAY 8)
     Route: 037
     Dates: start: 20230612
  8. RITUXIMAB [Suspect]
     Active Substance: RITUXIMAB
     Indication: Product used for unknown indication
     Dosage: CYCLIC (CYCLE 1-4, DAY 2, DAY 8)
     Route: 042
     Dates: start: 20230612
  9. VINCRISTINE SULFATE [Suspect]
     Active Substance: VINCRISTINE SULFATE
     Indication: Product used for unknown indication
     Dosage: CYCLIC (CYCLE 1, 3, DAY 1, DAY 8)
     Route: 042
     Dates: start: 20230612
  10. CYCLOPHOSPHAMIDE [Suspect]
     Active Substance: CYCLOPHOSPHAMIDE
     Indication: Product used for unknown indication
     Dosage: CYCLIC (CYCLE 1, 3, EVERY 12 HRS X 6 DOSES, DAYS 1-3)
     Route: 042
     Dates: start: 20230612
  11. DEXAMETHASONE [Suspect]
     Active Substance: DEXAMETHASONE
     Indication: Product used for unknown indication
     Dosage: CYCLIC (CYCLE 1, 3, DAYS 1-4, DAYS 11-14)
     Dates: start: 20230612

REACTIONS (1)
  - Lymphocyte count decreased [Recovered/Resolved]

NARRATIVE: CASE EVENT DATE: 20230714
